FAERS Safety Report 9478644 (Version 1)
Quarter: 2013Q3

REPORT INFORMATION
  Report Type: Report from Study
  Country: BR (occurrence: BR)
  Receive Date: 20130827
  Receipt Date: 20130827
  Transmission Date: 20140515
  Serious: Yes (Hospitalization)
  Sender: FDA-Public Use
  Company Number: BR-ABBOTT-13P-020-1138683-00

PATIENT
  Age: 82 Year
  Sex: Female
  Weight: 44 kg

DRUGS (4)
  1. HUMIRA [Suspect]
     Indication: RHEUMATOID ARTHRITIS
     Route: 058
     Dates: start: 20130131, end: 20130807
  2. HUMIRA [Suspect]
     Route: 058
     Dates: start: 20130822
  3. METHOTREXATE [Suspect]
     Indication: RHEUMATOID ARTHRITIS
     Route: 048
  4. NIMESULIDE [Concomitant]
     Indication: PAIN
     Route: 048

REACTIONS (7)
  - Cyst rupture [Recovered/Resolved]
  - Rheumatoid arthritis [Recovering/Resolving]
  - Pain [Unknown]
  - Anaemia [Unknown]
  - Local swelling [Recovered/Resolved]
  - Arthralgia [Recovering/Resolving]
  - Oedema peripheral [Unknown]
